FAERS Safety Report 10550877 (Version 1)
Quarter: 2014Q4

REPORT INFORMATION
  Report Type: Spontaneous
  Country: US (occurrence: None)
  Receive Date: 20141028
  Receipt Date: 20141028
  Transmission Date: 20150529
  Serious: Yes (Death, Life-Threatening, Hospitalization, Disabling)
  Sender: FDA-Public Use
  Company Number: None

PATIENT
  Age: 60 Year
  Sex: Female

DRUGS (2)
  1. ANASTROZOLE 1MG FILM COATED TABLETS [Suspect]
     Active Substance: ANASTROZOLE
     Indication: NEOPLASM MALIGNANT
     Dosage: 1 BY, 1, MOUTH
     Route: 048
     Dates: start: 201106
  2. ANASTROZOLE 1MG FILM COATED TABLETS [Suspect]
     Active Substance: ANASTROZOLE
     Indication: PROPHYLAXIS
     Dosage: 1 BY, 1, MOUTH
     Route: 048
     Dates: start: 201106

REACTIONS (1)
  - Blood calcium decreased [None]

NARRATIVE: CASE EVENT DATE: 201306
